FAERS Safety Report 19798211 (Version 1)
Quarter: 2021Q3

REPORT INFORMATION
  Report Type: Spontaneous
  Country: US (occurrence: US)
  Receive Date: 20210907
  Receipt Date: 20210907
  Transmission Date: 20211014
  Serious: No
  Sender: FDA-Public Use
  Company Number: US-TEVA-2021-US-1947957

PATIENT
  Sex: Female

DRUGS (1)
  1. HYDROXYUREA. [Suspect]
     Active Substance: HYDROXYUREA
     Route: 065

REACTIONS (5)
  - Pain in extremity [Unknown]
  - Lipase increased [Unknown]
  - Oral herpes [Unknown]
  - Stomatitis [Unknown]
  - Weight decreased [Unknown]
